FAERS Safety Report 4557939-6 (Version None)
Quarter: 2005Q1

REPORT INFORMATION
  Report Type: 
  Country: None (occurrence: None)
  Receive Date: 20050121
  Receipt Date: 20040218
  Transmission Date: 20050727
  Serious: No
  Sender: FDA-Public Use
  Company Number: US-BRISTOL-MYERS SQUIBB COMPANY-12511101

PATIENT
  Age: 66 Year
  Sex: Male
  Weight: 73 kg

DRUGS (5)
  1. SERZONE [Suspect]
     Indication: DEPRESSION
     Route: 048
  2. LOPID [Concomitant]
  3. TRAZODONE HCL [Concomitant]
     Dosage: DOSE TAKEN AT BEDTIME.
  4. QUININE [Concomitant]
  5. AMITRIPTYLINE HCL [Concomitant]

REACTIONS (4)
  - APATHY [None]
  - DEPRESSED MOOD [None]
  - DRUG INEFFECTIVE [None]
  - LISTLESS [None]
